FAERS Safety Report 9438699 (Version 1)
Quarter: 2013Q3

REPORT INFORMATION
  Report Type: Spontaneous
  Country: US (occurrence: US)
  Receive Date: 20130802
  Receipt Date: 20130802
  Transmission Date: 20140515
  Serious: Yes (Other)
  Sender: FDA-Public Use
  Company Number: CHPA2013US012150

PATIENT
  Age: 81 Year
  Sex: Male

DRUGS (4)
  1. EXCEDRIN MIGRAINE [Suspect]
     Indication: MIGRAINE
     Dosage: UNK, 2-3 TIMES PER WEEK
     Route: 048
  2. ANTIHYPERTENSIVE DRUGS [Concomitant]
  3. THYROID PREPARATIONS [Concomitant]
  4. ZOCOR [Concomitant]

REACTIONS (2)
  - Hepatic enzyme abnormal [Unknown]
  - Incorrect dose administered [Unknown]
